FAERS Safety Report 21637431 (Version 2)
Quarter: 2023Q1

REPORT INFORMATION
  Report Type: Spontaneous
  Country: US (occurrence: US)
  Receive Date: 20221124
  Receipt Date: 20230103
  Transmission Date: 20230418
  Serious: Yes (Other)
  Sender: FDA-Public Use
  Company Number: US-PFIZER INC-PV202200108742

PATIENT
  Age: 23 Year
  Sex: Male

DRUGS (2)
  1. BENEFIX [Suspect]
     Active Substance: COAGULATION FACTOR IX RECOMBINANT HUMAN\ISOPROPYL ALCOHOL
     Indication: Prophylaxis
     Dosage: 3000 IU (INFUSE 3000 UNITS +/-.10% INTO VEIN THREE TIMES WEEKLY FOR PROPHYLAXIS)
     Route: 042
     Dates: start: 20221121
  2. BENEFIX [Suspect]
     Active Substance: COAGULATION FACTOR IX RECOMBINANT HUMAN\ISOPROPYL ALCOHOL
     Indication: Haemorrhage
     Dosage: 6000 IU, AS NEEDED (INFUSE 6000 UNITS +/- 10% PRN FOR MAJOR BLEED)
     Route: 042
     Dates: start: 20221121

REACTIONS (1)
  - Haemarthrosis [Unknown]
